FAERS Safety Report 5803957-7 (Version None)
Quarter: 2008Q3

REPORT INFORMATION
  Report Type: 
  Country: None (occurrence: None)
  Receive Date: 20080703
  Receipt Date: 20080619
  Transmission Date: 20090109
  Serious: Yes (Hospitalization)
  Sender: FDA-Public Use
  Company Number: PRA1-2008-00023

PATIENT
  Age: 14 Year
  Sex: Female
  Weight: 51.2 kg

DRUGS (2)
  1. METHYLPHENIDATE HCL [Suspect]
     Indication: ATTENTION DEFICIT/HYPERACTIVITY DISORDER
     Dosage: 30 MG, 1X/DAY;QD, TRANSDERMAL
     Route: 062
     Dates: start: 20080315, end: 20080521
  2. DEPO-PROVERA SUSPENSION/INJ [Concomitant]

REACTIONS (2)
  - HALLUCINATION, AUDITORY [None]
  - HALLUCINATION, VISUAL [None]
